FAERS Safety Report 25280841 (Version 2)
Quarter: 2025Q2

REPORT INFORMATION
  Report Type: Spontaneous
  Country: CZ (occurrence: CZ)
  Receive Date: 20250508
  Receipt Date: 20250516
  Transmission Date: 20250717
  Serious: Yes (Death)
  Sender: NOVARTIS
  Company Number: CZ-002147023-NVSC2025CZ074138

PATIENT

DRUGS (1)
  1. ZOLGENSMA [Suspect]
     Active Substance: ONASEMNOGENE ABEPARVOVEC-XIOI
     Indication: Product used for unknown indication
     Route: 042

REACTIONS (3)
  - Spinal epidural haematoma [Fatal]
  - Subdural haematoma [Fatal]
  - Haemorrhage [Fatal]
